FAERS Safety Report 9442506 (Version 2)
Quarter: 2016Q2

REPORT INFORMATION
  Report Type: Report from Study
  Country: DE (occurrence: DE)
  Receive Date: 20130806
  Receipt Date: 20160506
  Transmission Date: 20160815
  Serious: Yes (Death, Life-Threatening)
  Sender: FDA-Public Use
  Company Number: DE-PFIZER INC-2013224703

PATIENT
  Age: 81 Year
  Sex: Female
  Weight: 99.3 kg

DRUGS (31)
  1. L-THYROXINE [Concomitant]
     Active Substance: LEVOTHYROXINE
     Indication: BLOOD THYROID STIMULATING HORMONE DECREASED
     Dosage: UNK
     Dates: start: 20071126
  2. RAMIPRIL. [Concomitant]
     Active Substance: RAMIPRIL
     Dosage: UNK
     Dates: start: 20091029
  3. ACTRAPID [Concomitant]
     Active Substance: INSULIN HUMAN
     Indication: TYPE 2 DIABETES MELLITUS
     Dosage: UNK
     Route: 058
     Dates: start: 1997
  4. PROTAPHAN [Concomitant]
     Indication: ACROMEGALY
     Dosage: UNK
     Route: 058
     Dates: start: 20091029
  5. OCTREOTIDE LAR [Concomitant]
     Active Substance: OCTREOTIDE
     Dosage: UNK
     Dates: start: 20050525
  6. CARMEN [Concomitant]
     Active Substance: LERCANIDIPINE
     Indication: HYPERTENSION
     Dosage: UNK
     Dates: start: 20070529
  7. L-THYROXINE [Concomitant]
     Active Substance: LEVOTHYROXINE
     Dosage: UNK
     Dates: start: 20091029
  8. ACTRAPID [Concomitant]
     Active Substance: INSULIN HUMAN
     Indication: ACROMEGALY
     Dosage: UNK
     Route: 058
     Dates: start: 20091029
  9. HCT [Concomitant]
     Active Substance: HYDROCHLOROTHIAZIDE
     Indication: HYPERTENSION
     Dosage: UNK
     Dates: start: 20070529
  10. CARMEN [Concomitant]
     Active Substance: LERCANIDIPINE
     Dosage: UNK
     Dates: start: 20080926
  11. L-THYROXINE [Concomitant]
     Active Substance: LEVOTHYROXINE
     Dosage: UNK
     Dates: start: 20080926
  12. BISOPROLOL [Concomitant]
     Active Substance: BISOPROLOL
     Dosage: UNK
     Dates: start: 20080926
  13. BISOPROLOL [Concomitant]
     Active Substance: BISOPROLOL
     Dosage: UNK
     Dates: start: 20091029
  14. RAMIPRIL. [Concomitant]
     Active Substance: RAMIPRIL
     Indication: HYPERTENSION
     Dosage: UNK
     Dates: start: 20070529
  15. RAMIPRIL PLUS [Concomitant]
     Active Substance: RAMIPRIL
     Dosage: UNK
     Dates: start: 20080926
  16. RAMIPRIL BETA COMP 25/12.5 [Concomitant]
     Indication: HYPERTENSION
     Dosage: UNK
     Dates: start: 20071024
  17. OCTREOTIDE LAR [Concomitant]
     Active Substance: OCTREOTIDE
     Dosage: UNK
     Dates: start: 20040527, end: 20050216
  18. HYDROCORTISONE. [Concomitant]
     Active Substance: HYDROCORTISONE
     Dosage: UNK
     Dates: start: 20091029
  19. CARMEN [Concomitant]
     Active Substance: LERCANIDIPINE
     Dosage: UNK
     Dates: start: 20071126
  20. RAMIPRIL PLUS [Concomitant]
     Active Substance: RAMIPRIL
     Indication: HYPERTENSION
     Dosage: UNK
     Dates: start: 20071126
  21. HYDROCORTISONE. [Concomitant]
     Active Substance: HYDROCORTISONE
     Indication: ADRENOCORTICOTROPIC HORMONE DEFICIENCY
     Dosage: UNK
     Dates: start: 20071126
  22. HYDROCORTISONE. [Concomitant]
     Active Substance: HYDROCORTISONE
     Dosage: UNK
     Dates: start: 20080926
  23. BISOPROLOL [Concomitant]
     Active Substance: BISOPROLOL
     Dosage: UNK
     Dates: start: 20071024
  24. SPIRO COMP [Concomitant]
     Indication: CARDIAC FAILURE
     Dosage: UNK
     Dates: start: 20071024
  25. SOMAVERT [Suspect]
     Active Substance: PEGVISOMANT
     Indication: ACROMEGALY
     Dosage: 15 MG, DAILY, 7 INJECTIONS/WEEK
     Dates: start: 20061221
  26. BISOPROLOL [Concomitant]
     Active Substance: BISOPROLOL
     Indication: HYPERTENSION
     Dosage: UNK
     Dates: start: 20070529
  27. PROTAPHAN [Concomitant]
     Indication: TYPE 2 DIABETES MELLITUS
     Dosage: UNK
     Route: 058
     Dates: start: 1997
  28. OCTREOTIDE LAR [Concomitant]
     Active Substance: OCTREOTIDE
     Dosage: UNK
     Dates: start: 20030123
  29. CARMEN [Concomitant]
     Active Substance: LERCANIDIPINE
     Dosage: UNK
     Dates: start: 20091029
  30. BISOPROLOL [Concomitant]
     Active Substance: BISOPROLOL
     Dosage: UNK
     Dates: start: 20071126
  31. L-THYROXIN [Concomitant]
     Active Substance: LEVOTHYROXINE SODIUM
     Dosage: UNK
     Dates: start: 20071024

REACTIONS (1)
  - Death [Fatal]

NARRATIVE: CASE EVENT DATE: 20121106
